APPROVED DRUG PRODUCT: CALCIPOTRIENE AND BETAMETHASONE DIPROPIONATE
Active Ingredient: BETAMETHASONE DIPROPIONATE; CALCIPOTRIENE
Strength: 0.064%;0.005%
Dosage Form/Route: OINTMENT;TOPICAL
Application: A200174 | Product #001 | TE Code: AB
Applicant: PADAGIS ISRAEL PHARMACEUTICALS LTD
Approved: Dec 12, 2014 | RLD: No | RS: No | Type: RX